FAERS Safety Report 8949652 (Version 1)
Quarter: 2012Q4

REPORT INFORMATION
  Report Type: 
  Country: US (occurrence: US)
  Receive Date: 20121206
  Receipt Date: 20121206
  Transmission Date: 20130627
  Serious: No
  Sender: FDA-Public Use
  Company Number: US-B.I. PHARMACEUTICALS,INC./RIDGEFIELD-2012-BI-01693BP

PATIENT
  Age: 70 Year
  Sex: Female

DRUGS (3)
  1. PRADAXA [Suspect]
     Indication: CEREBROVASCULAR ACCIDENT PROPHYLAXIS
     Dosage: 300 mg
     Route: 048
     Dates: start: 201107
  2. PRADAXA [Suspect]
     Indication: ATRIAL FIBRILLATION
  3. BLOOD PRESSURE MEDICATIONS [Concomitant]

REACTIONS (1)
  - Hot flush [Not Recovered/Not Resolved]
